FAERS Safety Report 14671011 (Version 2)
Quarter: 2018Q3

REPORT INFORMATION
  Report Type: Spontaneous
  Country: BR (occurrence: BR)
  Receive Date: 20180322
  Receipt Date: 20180723
  Transmission Date: 20181010
  Serious: Yes (Other)
  Sender: FDA-Public Use
  Company Number: BR-BIOMARINAP-BR-2018-116697

PATIENT
  Sex: Female
  Weight: 24 kg

DRUGS (3)
  1. NEOZINE                            /00038601/ [Concomitant]
     Indication: PRODUCT USED FOR UNKNOWN INDICATION
  2. PONDERA [Concomitant]
     Active Substance: PAROXETINE HYDROCHLORIDE
     Indication: NERVOUSNESS
     Dosage: 20 MG, QD
  3. VIMIZIM [Suspect]
     Active Substance: ELOSULFASE ALFA
     Indication: MUCOPOLYSACCHARIDOSIS IV
     Dosage: UNK UNK, QW
     Route: 042
     Dates: start: 20060614

REACTIONS (2)
  - Corneal disorder [Recovering/Resolving]
  - Spinal pain [Recovering/Resolving]

NARRATIVE: CASE EVENT DATE: 2009
